FAERS Safety Report 12133405 (Version 3)
Quarter: 2016Q1

REPORT INFORMATION
  Report Type: Report from Study
  Country: TW (occurrence: TW)
  Receive Date: 20160301
  Receipt Date: 20160314
  Transmission Date: 20160526
  Serious: Yes (Death, Other)
  Sender: FDA-Public Use
  Company Number: TW-ABBVIE-16K-153-1569314-00

PATIENT
  Age: 73 Year
  Sex: Female
  Weight: 55 kg

DRUGS (1)
  1. HUMIRA [Suspect]
     Active Substance: ADALIMUMAB
     Indication: RHEUMATOID ARTHRITIS
     Route: 058
     Dates: start: 20140403, end: 20151130

REACTIONS (6)
  - Chest pain [Unknown]
  - Aortic dissection [Fatal]
  - Oesophageal carcinoma [Unknown]
  - Pain in jaw [Unknown]
  - Pain in extremity [Unknown]
  - Dysphagia [Unknown]

NARRATIVE: CASE EVENT DATE: 20160122
